FAERS Safety Report 4665993-6 (Version None)
Quarter: 2005Q2

REPORT INFORMATION
  Report Type: 
  Country: None (occurrence: None)
  Receive Date: 20050517
  Receipt Date: 20050117
  Transmission Date: 20051028
  Serious: Yes (Death)
  Sender: FDA-Public Use
  Company Number: S05-USA-01040-03

PATIENT
  Age: 64 Year
  Sex: Male
  Weight: 88.905 kg

DRUGS (6)
  1. NAMENDA [Suspect]
     Dosage: 10 MG BID PO
     Route: 048
     Dates: start: 20040201, end: 20041001
  2. EXELON [Concomitant]
  3. LANOXIN [Concomitant]
  4. DEPAKOTE [Concomitant]
  5. SEROQUEL [Concomitant]
  6. SINEMET [Concomitant]

REACTIONS (1)
  - DEATH [None]
